FAERS Safety Report 9868985 (Version 2)
Quarter: 2014Q1

REPORT INFORMATION
  Report Type: Spontaneous
  Country: IT (occurrence: IT)
  Receive Date: 20140205
  Receipt Date: 20140321
  Transmission Date: 20141002
  Serious: Yes (Hospitalization)
  Sender: FDA-Public Use
  Company Number: IT-ROCHE-1343571

PATIENT
  Age: 55 Year
  Sex: Female
  Weight: 74 kg

DRUGS (9)
  1. MABTHERA [Suspect]
     Indication: NON-HODGKIN^S LYMPHOMA
     Route: 042
     Dates: start: 20140115, end: 20140115
  2. ENDOXAN BAXTER [Concomitant]
     Route: 042
     Dates: start: 20140108, end: 20140108
  3. ADRIBLASTINA [Concomitant]
     Route: 041
     Dates: start: 20140108, end: 20140108
  4. VINCRISTINA [Concomitant]
     Route: 065
     Dates: start: 20140108, end: 20140108
  5. URBASON [Concomitant]
     Route: 048
     Dates: start: 20140108, end: 20140108
  6. TRIMETON (ITALY) [Concomitant]
     Indication: PREMEDICATION
     Route: 042
     Dates: start: 20140115, end: 20140115
  7. FLEBOCORTID RICHTER [Concomitant]
     Route: 042
     Dates: start: 20140115, end: 20140115
  8. PARACETAMOL [Concomitant]
     Indication: PREMEDICATION
     Route: 041
     Dates: start: 20140115, end: 20140115
  9. ZANTAC [Concomitant]
     Indication: PREMEDICATION
     Route: 042
     Dates: start: 20140115, end: 20140115

REACTIONS (2)
  - Hypertension [Recovered/Resolved]
  - Epistaxis [Recovered/Resolved]
